FAERS Safety Report 17415972 (Version 1)
Quarter: 2020Q1

REPORT INFORMATION
  Report Type: Spontaneous
  Country: AT (occurrence: AT)
  Receive Date: 20200213
  Receipt Date: 20200213
  Transmission Date: 20200409
  Serious: Yes (Life-Threatening, Hospitalization, Other)
  Sender: FDA-Public Use
  Company Number: AT-BAXTER-2020BAX003228

PATIENT
  Age: 56 Year
  Sex: Female

DRUGS (11)
  1. ONCOVIN [Suspect]
     Active Substance: VINCRISTINE SULFATE
     Indication: HODGKIN^S DISEASE
     Dosage: CYCLICAL
     Route: 065
  2. ETOPOSIDE. [Suspect]
     Active Substance: ETOPOSIDE
     Indication: HODGKIN^S DISEASE
     Dosage: 4 CYCLICAL; CYCLICAL
     Route: 065
  3. PREDNISONE. [Suspect]
     Active Substance: PREDNISONE
     Indication: HODGKIN^S DISEASE
     Dosage: 4 CYCLICAL; CYCLICAL
     Route: 065
  4. CYCLOPHOSPHAMIDE. [Suspect]
     Active Substance: CYCLOPHOSPHAMIDE
     Indication: HODGKIN^S DISEASE
     Dosage: DOSE WAS REDUCED FROM THE 2ND CYCLE ONWARDS (TO DOSE LEVEL 3)
     Route: 065
  5. BLEOMYCIN [Suspect]
     Active Substance: BLEOMYCIN SULFATE
     Indication: HODGKIN^S DISEASE NODULAR SCLEROSIS STAGE IV
     Dosage: DOSE WAS REDUCED (TO DOSE LEVEL 2); CYCLICAL
     Route: 065
  6. BLEOMYCIN [Suspect]
     Active Substance: BLEOMYCIN SULFATE
     Indication: HODGKIN^S DISEASE
     Dosage: DOSE WAS REDUCED FROM THE 2ND CYCLE ONWARDS (TO DOSE LEVEL 3)
     Route: 065
  7. BLEOMYCIN [Suspect]
     Active Substance: BLEOMYCIN SULFATE
     Route: 065
     Dates: start: 2018
  8. PROCARBAZINE [Suspect]
     Active Substance: PROCARBAZINE
     Indication: HODGKIN^S DISEASE
     Dosage: ; CYCLICAL
     Route: 065
  9. CYCLOPHOSPHAMIDE. [Suspect]
     Active Substance: CYCLOPHOSPHAMIDE
     Dosage: DOSE WAS REDUCED (TO DOSE LEVEL 2); CYCLICAL
     Route: 065
  10. DOXIL [Suspect]
     Active Substance: DOXORUBICIN HYDROCHLORIDE
     Indication: HODGKIN^S DISEASE
     Dosage: 4 CYCLICAL; CYCLICAL
     Route: 065
  11. CYCLOPHOSPHAMIDE. [Suspect]
     Active Substance: CYCLOPHOSPHAMIDE
     Indication: HODGKIN^S DISEASE NODULAR SCLEROSIS STAGE IV
     Route: 065
     Dates: start: 2018

REACTIONS (2)
  - Febrile neutropenia [Recovered/Resolved]
  - Thrombocytopenia [Recovered/Resolved]
